FAERS Safety Report 7151353-5 (Version None)
Quarter: 2010Q4

REPORT INFORMATION
  Report Type: 
  Country: None (occurrence: None)
  Receive Date: 20101210
  Receipt Date: 20101201
  Transmission Date: 20110411
  Serious: Yes (Hospitalization)
  Sender: FDA-Public Use
  Company Number: FR-ASTRAZENECA-2010SE56921

PATIENT
  Age: 22657 Day
  Sex: Female

DRUGS (4)
  1. NEXIUM [Suspect]
     Route: 048
     Dates: end: 20101112
  2. TETRAZEPAM [Suspect]
     Route: 048
     Dates: end: 20101112
  3. SPASFON [Suspect]
     Route: 048
     Dates: end: 20101112
  4. MEPRONIZINE [Suspect]
     Route: 048
     Dates: end: 20101112

REACTIONS (2)
  - CONVULSION [None]
  - HYPONATRAEMIA [None]
